FAERS Safety Report 25577585 (Version 2)
Quarter: 2025Q3

REPORT INFORMATION
  Report Type: Report from Study
  Country: US (occurrence: US)
  Receive Date: 20250718
  Receipt Date: 20250805
  Transmission Date: 20251020
  Serious: Yes (Other)
  Sender: PFIZER
  Company Number: US-PFIZER INC-202500121757

PATIENT
  Age: 65 Year
  Sex: Male

DRUGS (2)
  1. LORBRENA [Suspect]
     Active Substance: LORLATINIB
     Dosage: TAKE 1 TABLET DAILY
  2. LORBRENA [Suspect]
     Active Substance: LORLATINIB
     Dosage: TAKE 3 TABLETS DAILY

REACTIONS (16)
  - Neuropathy peripheral [Not Recovered/Not Resolved]
  - Urinary retention [Recovering/Resolving]
  - Radiotherapy [Not Recovered/Not Resolved]
  - Headache [Recovering/Resolving]
  - Fatigue [Recovering/Resolving]
  - Dizziness [Recovering/Resolving]
  - Balance disorder [Recovered/Resolved]
  - Dizziness postural [Recovered/Resolved]
  - Burning sensation [Recovering/Resolving]
  - Blood pressure increased [Not Recovered/Not Resolved]
  - Speech disorder developmental [Not Recovered/Not Resolved]
  - Blood cholesterol increased [Not Recovered/Not Resolved]
  - Joint swelling [Not Recovered/Not Resolved]
  - Weight increased [Not Recovered/Not Resolved]
  - Arthralgia [Not Recovered/Not Resolved]
  - Peripheral swelling [Not Recovered/Not Resolved]
